FAERS Safety Report 21849052 (Version 1)
Quarter: 2023Q1

REPORT INFORMATION
  Report Type: Spontaneous
  Country: US (occurrence: None)
  Receive Date: 20230110
  Receipt Date: 20230110
  Transmission Date: 20230417
  Serious: Yes (Hospitalization)
  Sender: FDA-Public Use
  Company Number: None

PATIENT
  Sex: Female
  Weight: 96.16 kg

DRUGS (15)
  1. VERZENIO [Suspect]
     Active Substance: ABEMACICLIB
     Indication: Breast cancer female
     Dosage: FREQUENCY : TWICE A DAY;?
     Route: 048
  2. ARIMIDEX [Concomitant]
     Active Substance: ANASTROZOLE
  3. ATORVASTATIN [Concomitant]
     Active Substance: ATORVASTATIN
  4. CATHFLO ACTIVASE [Concomitant]
     Active Substance: ALTEPLASE
  5. CLARITIN [Concomitant]
     Active Substance: LORATADINE
  6. FLUCONAZOLE [Concomitant]
     Active Substance: FLUCONAZOLE
  7. HEPARIN [Concomitant]
     Active Substance: HEPARIN SODIUM
  8. IRBESARTAN [Concomitant]
     Active Substance: IRBESARTAN
  9. MAGNESIUM OXIDE [Concomitant]
     Active Substance: MAGNESIUM OXIDE
  10. METFORMIN [Concomitant]
     Active Substance: METFORMIN HYDROCHLORIDE
  11. MICONAZOLE [Concomitant]
     Active Substance: MICONAZOLE
  12. OMEPRAZOLE [Concomitant]
     Active Substance: OMEPRAZOLE
  13. ONDANSETRON [Concomitant]
     Active Substance: ONDANSETRON
  14. PROCHLORPERAZINE [Concomitant]
     Active Substance: PROCHLORPERAZINE
  15. VITAMIN D3 [Concomitant]
     Active Substance: CHOLECALCIFEROL

REACTIONS (1)
  - Hospitalisation [None]
